FAERS Safety Report 9326922 (Version 1)
Quarter: 2013Q2

REPORT INFORMATION
  Report Type: Spontaneous
  Country: US (occurrence: US)
  Receive Date: 20130604
  Receipt Date: 20130604
  Transmission Date: 20140414
  Serious: No
  Sender: FDA-Public Use
  Company Number: US-PFIZER INC-2013165815

PATIENT
  Age: 37 Year
  Sex: Female

DRUGS (1)
  1. ADVIL ALLERGY AND CONGESTION RELIEF [Suspect]
     Dosage: UNK
     Dates: end: 20130529

REACTIONS (2)
  - Drug effect incomplete [Unknown]
  - Blood pressure increased [Recovered/Resolved]
